FAERS Safety Report 6755708-X (Version None)
Quarter: 2010Q2

REPORT INFORMATION
  Report Type: 
  Country: None (occurrence: None)
  Receive Date: 20100604
  Receipt Date: 20100525
  Transmission Date: 20101027
  Serious: Yes (Other)
  Sender: FDA-Public Use
  Company Number: JP-PFIZER INC-2010065845

PATIENT
  Age: 80 Year
  Sex: Female

DRUGS (2)
  1. SELARA [Suspect]
  2. MEXITIL [Suspect]

REACTIONS (1)
  - HAEMORRHAGE SUBCUTANEOUS [None]
